FAERS Safety Report 21860782 (Version 1)
Quarter: 2023Q1

REPORT INFORMATION
  Report Type: Spontaneous
  Country: US (occurrence: US)
  Receive Date: 20230113
  Receipt Date: 20230113
  Transmission Date: 20230418
  Serious: No
  Sender: FDA-Public Use
  Company Number: US-NOVOPROD-975591

PATIENT
  Age: 53 Year
  Sex: Female

DRUGS (2)
  1. WEGOVY [Suspect]
     Active Substance: SEMAGLUTIDE
     Dosage: 2.4 MG
     Route: 058
  2. WEGOVY [Suspect]
     Active Substance: SEMAGLUTIDE
     Indication: Product used for unknown indication
     Dosage: UNK
     Route: 058

REACTIONS (8)
  - Food craving [Unknown]
  - Increased appetite [Unknown]
  - Malaise [Unknown]
  - Weight increased [Unknown]
  - Weight loss poor [Unknown]
  - Drug ineffective [Unknown]
  - Product quality issue [Unknown]
  - Diarrhoea [Unknown]
